FAERS Safety Report 20500576 (Version 3)
Quarter: 2022Q1

REPORT INFORMATION
  Report Type: Spontaneous
  Country: US (occurrence: US)
  Receive Date: 20220222
  Receipt Date: 20220303
  Transmission Date: 20220424
  Serious: No
  Sender: FDA-Public Use
  Company Number: US-SANOFI-00974769

PATIENT
  Age: 64 Year
  Sex: Male

DRUGS (1)
  1. DUPIXENT [Suspect]
     Active Substance: DUPILUMAB
     Indication: Eczema
     Dosage: 300 MG, QW
     Route: 058

REACTIONS (6)
  - Injection site injury [Unknown]
  - Wrong technique in device usage process [Unknown]
  - Eczema [Unknown]
  - Extra dose administered [Unknown]
  - Intentional product misuse [Unknown]
  - Product use issue [Unknown]
